FAERS Safety Report 6741554-X (Version None)
Quarter: 2010Q2

REPORT INFORMATION
  Report Type: 
  Country: None (occurrence: None)
  Receive Date: 20100526
  Receipt Date: 20100517
  Transmission Date: 20101027
  Serious: Yes (Hospitalization)
  Sender: FDA-Public Use
  Company Number: SE-ABBOTT-10P-150-0645774-00

PATIENT
  Sex: Female

DRUGS (1)
  1. HUMIRA [Suspect]
     Indication: DRUG USE FOR UNKNOWN INDICATION
     Dates: start: 20080601, end: 20100414

REACTIONS (5)
  - BLOOD PRESSURE INCREASED [None]
  - ERYTHEMA [None]
  - FLUSHING [None]
  - PALPITATIONS [None]
  - SWELLING FACE [None]
